FAERS Safety Report 8773012 (Version 2)
Quarter: 2012Q4

REPORT INFORMATION
  Report Type: 
  Country: US (occurrence: US)
  Receive Date: 20120907
  Receipt Date: 20120911
  Transmission Date: 20130627
  Serious: Yes (Death, Life-Threatening, Hospitalization)
  Sender: FDA-Public Use
  Company Number: US-ACTELION-A-NJ2012-71093

PATIENT
  Age: 62 Year
  Sex: Female

DRUGS (6)
  1. TRACLEER [Suspect]
     Indication: PULMONARY ARTERIAL HYPERTENSION
     Dosage: UNK
     Route: 048
     Dates: start: 200702
  2. VENTAVIS [Suspect]
     Indication: PULMONARY ARTERIAL HYPERTENSION
     Route: 055
  3. ADCIRCA [Concomitant]
  4. REMODULIN [Concomitant]
  5. FUROSEMIDE [Concomitant]
  6. PROCARDIA [Concomitant]

REACTIONS (2)
  - Intestinal perforation [Fatal]
  - Gastrointestinal necrosis [Fatal]
